FAERS Safety Report 10627207 (Version 3)
Quarter: 2015Q1

REPORT INFORMATION
  Report Type: Spontaneous
  Country: DE (occurrence: DE)
  Receive Date: 20141204
  Receipt Date: 20150106
  Transmission Date: 20150720
  Serious: Yes (Other)
  Sender: FDA-Public Use
  Company Number: DE-GLAXOSMITHKLINE-DE2014030003

PATIENT
  Age: 53 Year
  Sex: Male
  Weight: 60 kg

DRUGS (5)
  1. NICORETTE [Suspect]
     Active Substance: NICOTINE
     Indication: PRODUCT USED FOR UNKNOWN INDICATION
     Dosage: UNK
     Route: 048
     Dates: start: 201208
  2. RISPERIDONE. [Concomitant]
     Active Substance: RISPERIDONE
     Route: 048
  3. RISPERIDONE. [Concomitant]
     Active Substance: RISPERIDONE
     Route: 048
  4. RISPERIDONE. [Concomitant]
     Active Substance: RISPERIDONE
     Route: 048
  5. RISPERIDONE. [Concomitant]
     Active Substance: RISPERIDONE
     Route: 048

REACTIONS (2)
  - Overdose [Not Recovered/Not Resolved]
  - Drug dependence [Unknown]
